FAERS Safety Report 10728858 (Version 1)
Quarter: 2015Q1

REPORT INFORMATION
  Report Type: Spontaneous
  Country: US (occurrence: US)
  Receive Date: 20150122
  Receipt Date: 20150122
  Transmission Date: 20150721
  Serious: No
  Sender: FDA-Public Use
  Company Number: US-AMGEN INC.-USASP2015004938

PATIENT
  Age: 68 Year
  Sex: Female

DRUGS (2)
  1. ENBREL [Suspect]
     Active Substance: ETANERCEPT
     Indication: RHEUMATOID ARTHRITIS
     Dosage: 50 MG, Q2WK
     Route: 065
     Dates: start: 2000
  2. METHOTREXATE [Concomitant]
     Active Substance: METHOTREXATE
     Dosage: 2.5 MG, 3 TABS WEEKLY

REACTIONS (4)
  - Arthralgia [Not Recovered/Not Resolved]
  - Inappropriate schedule of drug administration [Not Recovered/Not Resolved]
  - Musculoskeletal stiffness [Not Recovered/Not Resolved]
  - Feeling abnormal [Not Recovered/Not Resolved]
